FAERS Safety Report 19221687 (Version 2)
Quarter: 2022Q3

REPORT INFORMATION
  Report Type: Report from Study
  Country: FR (occurrence: FR)
  Receive Date: 20210505
  Receipt Date: 20220808
  Transmission Date: 20221027
  Serious: Yes (Hospitalization, Other)
  Sender: FDA-Public Use
  Company Number: FR-AMGEN-FRACT2021064833

PATIENT
  Age: 33 Year
  Sex: Male
  Weight: 78 kg

DRUGS (8)
  1. PANITUMUMAB [Suspect]
     Active Substance: PANITUMUMAB
     Indication: Colorectal cancer
     Dosage: 438 MILLIGRAM
     Route: 042
     Dates: start: 20201211
  2. OXALIPLATIN [Suspect]
     Active Substance: OXALIPLATIN
     Indication: Colorectal cancer
     Dosage: 158.95 MILLIGRAM
     Route: 042
     Dates: start: 20201211
  3. LEVOLEUCOVORIN CALCIUM [Suspect]
     Active Substance: LEVOLEUCOVORIN CALCIUM
     Indication: Colorectal cancer
     Dosage: 374 MILLIGRAM
     Route: 042
     Dates: start: 20201211
  4. FLUOROURACIL [Suspect]
     Active Substance: FLUOROURACIL
     Indication: Colorectal cancer
     Dosage: 748 MILLIGRAM (CUMULATIVE DOSE ADMINISTERED: 7464 MG)
     Route: 040
     Dates: start: 20201211
  5. FLUOROURACIL [Suspect]
     Active Substance: FLUOROURACIL
     Dosage: 4300 MILLIGRAM (CUMULATIVE DOSE ADMINISTERED: 43376 MG)
     Route: 042
     Dates: start: 20201211
  6. DOXYCYCLINE [Concomitant]
     Active Substance: DOXYCYCLINE
     Indication: Prophylaxis
     Dosage: 200 MILLIGRAM
     Route: 048
     Dates: start: 20201212
  7. DEXERYL [CHLORPHENAMINE MALEATE;DEXTROMETHORPHAN HYDROBROMIDE;GUAIFENE [Concomitant]
     Indication: Rash
     Dosage: UNK (CUTANEOUS)
     Dates: start: 20201212
  8. DOLIPRANE [Concomitant]
     Active Substance: ACETAMINOPHEN
     Indication: Pain
     Dosage: UNK
     Route: 048
     Dates: start: 20201214

REACTIONS (1)
  - Gastrointestinal obstruction [Recovered/Resolved with Sequelae]

NARRATIVE: CASE EVENT DATE: 20210421
